FAERS Safety Report 8552854 (Version 2)
Quarter: 2012Q4

REPORT INFORMATION
  Report Type: 
  Country: ES (occurrence: ES)
  Receive Date: 20120508
  Receipt Date: 20121002
  Transmission Date: 20130627
  Serious: Yes (Other)
  Sender: FDA-Public Use
  Company Number: ES-ELI_LILLY_AND_COMPANY-ES201204009084

PATIENT
  Sex: Female

DRUGS (2)
  1. FORSTEO [Suspect]
     Dosage: UNK, unknown
     Route: 065
     Dates: start: 20100429, end: 201105
  2. FORSTEO [Suspect]
     Dosage: UNK, unknown
     Route: 065
     Dates: start: 201110

REACTIONS (4)
  - Basal cell carcinoma [Unknown]
  - Morton^s neuroma [Unknown]
  - Psoriasis [Unknown]
  - Rheumatic disorder [Unknown]
